FAERS Safety Report 9902984 (Version 1)
Quarter: 2014Q1

REPORT INFORMATION
  Report Type: Spontaneous
  Country: US (occurrence: US)
  Receive Date: 20140217
  Receipt Date: 20140217
  Transmission Date: 20141002
  Serious: Yes (Hospitalization)
  Sender: FDA-Public Use
  Company Number: PHEH2014US002988

PATIENT
  Sex: Female

DRUGS (15)
  1. DIOVAN [Suspect]
     Indication: BLOOD PRESSURE ABNORMAL
     Dosage: 320 MG, QD
  2. DIOVAN [Suspect]
     Dosage: 320 MG, QD
  3. DIOVAN [Suspect]
     Dosage: 320 MG, QD
  4. DIOVAN [Suspect]
     Dosage: 320 MG, QD
  5. METOPROLOL [Concomitant]
     Dosage: 50 MG, BID
  6. AMLODIPINE [Concomitant]
     Dosage: 0.5 MG, QD (IN THE MORNING)
  7. CRESTOR [Concomitant]
     Dosage: 10 MG, QD
  8. ZETIA [Concomitant]
     Dosage: 10 MG, QD
  9. VITAMIN C [Concomitant]
     Dosage: 1000 MG, UNK
  10. PROBIOTIC [Concomitant]
     Dosage: UNK UKN, UNK
  11. LUTEIN [Concomitant]
     Dosage: 6 MG, QD
  12. CALCIUM [Concomitant]
     Dosage: 1000 MG, UNK
  13. MAGNESIUM [Concomitant]
     Dosage: 250 MG, UNK
  14. VITAMIN D3 [Concomitant]
     Dosage: 1000 MG, UNK
  15. CRANBERRY [Concomitant]

REACTIONS (1)
  - Subileus [Unknown]
